FAERS Safety Report 6804801-1 (Version None)
Quarter: 2010Q2

REPORT INFORMATION
  Report Type: 
  Country: None (occurrence: None)
  Receive Date: 20100628
  Receipt Date: 20100617
  Transmission Date: 20101027
  Serious: Yes (Death)
  Sender: FDA-Public Use
  Company Number: JP-ROCHE-703353

PATIENT
  Sex: Female
  Weight: 42 kg

DRUGS (5)
  1. ACTEMRA [Suspect]
     Indication: RHEUMATOID ARTHRITIS
     Route: 041
     Dates: start: 20100126, end: 20100126
  2. MEDROL [Concomitant]
     Route: 048
  3. TAKEPRON [Concomitant]
     Route: 048
  4. FUROSEMIDE [Concomitant]
     Dosage: DOSAGE FORM REPORTED AS PERORAL AGENT
     Route: 048
  5. EPOGIN S [Concomitant]
     Route: 058
     Dates: start: 20091211, end: 20100402

REACTIONS (4)
  - CARDIAC AMYLOIDOSIS [None]
  - DIALYSIS [None]
  - RENAL AMYLOIDOSIS [None]
  - THROMBOCYTOPENIA [None]
